FAERS Safety Report 9216228 (Version 1)
Quarter: 2013Q2

REPORT INFORMATION
  Report Type: Spontaneous
  Country: IT (occurrence: None)
  Receive Date: 20130403
  Receipt Date: 20130403
  Transmission Date: 20140414
  Serious: Yes (Other)
  Sender: FDA-Public Use
  Company Number: 7200672

PATIENT
  Age: 55 Year
  Sex: Female

DRUGS (3)
  1. THYROXIN [Suspect]
     Dosage: 01/??/2001  -
     Dates: start: 200101
  2. THYROXIN [Suspect]
     Indication: HYPOTHYROIDISM
     Dosage: 01/??/2001  -
     Dates: start: 200101
  3. CLOROQUINE [Suspect]
     Dosage: 200 MG,  1  IN  1  D?  -  STOPPED

REACTIONS (9)
  - Cutaneous lupus erythematosus [None]
  - Polymyositis [None]
  - Blood creatine phosphokinase increased [None]
  - Blood lactate dehydrogenase increased [None]
  - Dermatitis [None]
  - Oesophageal spasm [None]
  - Abdominal pain upper [None]
  - Tachycardia [None]
  - Hypertrichosis [None]
